FAERS Safety Report 8781863 (Version 1)
Quarter: 2012Q4

REPORT INFORMATION
  Report Type: 
  Country: IT (occurrence: IT)
  Receive Date: 20120913
  Receipt Date: 20120913
  Transmission Date: 20130627
  Serious: Yes (Hospitalization, Other)
  Sender: FDA-Public Use
  Company Number: IT-009507513-1208ITA012450

PATIENT

DRUGS (2)
  1. INVANZ [Suspect]
     Indication: INFECTION
     Dosage: 1 g, qd
     Route: 042
     Dates: start: 20120721, end: 20120728
  2. DAPTOMYCIN [Suspect]
     Indication: ENDOCARDITIS
     Dosage: 400 mg, qd
     Route: 042
     Dates: start: 20120723, end: 20120728

REACTIONS (5)
  - Renal failure acute [Recovering/Resolving]
  - Face oedema [Recovering/Resolving]
  - Generalised erythema [Recovering/Resolving]
  - Pyrexia [Recovering/Resolving]
  - Hypoxia [Recovering/Resolving]
